FAERS Safety Report 6212866-3 (Version None)
Quarter: 2009Q2

REPORT INFORMATION
  Report Type: 
  Country: None (occurrence: None)
  Receive Date: 20090603
  Receipt Date: 20090526
  Transmission Date: 20091009
  Serious: Yes (Hospitalization)
  Sender: FDA-Public Use
  Company Number: PHHO2009US04887

PATIENT
  Sex: Female
  Weight: 52.154 kg

DRUGS (1)
  1. RAD 666 RAD+TAB [Suspect]
     Indication: RENAL TRANSPLANT
     Dosage: 2.25 MG
     Dates: start: 19990528

REACTIONS (7)
  - ANAEMIA [None]
  - CHILLS [None]
  - NAUSEA [None]
  - PAIN [None]
  - PYELONEPHRITIS [None]
  - PYREXIA [None]
  - VOMITING [None]
